FAERS Safety Report 9783135 (Version 2)
Quarter: 2014Q2

REPORT INFORMATION
  Report Type: Spontaneous
  Country: IT (occurrence: IT)
  Receive Date: 20131226
  Receipt Date: 20140410
  Transmission Date: 20141212
  Serious: Yes (Other)
  Sender: FDA-Public Use
  Company Number: IT-PFIZER INC-2013367487

PATIENT
  Age: 50 Year
  Sex: Female

DRUGS (3)
  1. LYRICA [Suspect]
     Indication: DEPRESSION
     Dosage: THE TOTAL DOSE OF 25 MG IN THE EVENING
     Route: 048
     Dates: start: 20131203, end: 20131203
  2. ZOLOFT [Concomitant]
  3. TAVOR [Concomitant]

REACTIONS (5)
  - Off label use [Unknown]
  - Agitation [Unknown]
  - Hyperhidrosis [Unknown]
  - Tachycardia [Unknown]
  - Tremor [Unknown]
